FAERS Safety Report 7087803-2 (Version None)
Quarter: 2010Q4

REPORT INFORMATION
  Report Type: 
  Country: None (occurrence: None)
  Receive Date: 20101108
  Receipt Date: 20101025
  Transmission Date: 20110411
  Serious: Yes (Hospitalization, Other)
  Sender: FDA-Public Use
  Company Number: FR-ELI_LILLY_AND_COMPANY-FR201010006744

PATIENT
  Age: 66 Year
  Sex: Female

DRUGS (7)
  1. OPTRUMA [Suspect]
     Indication: OSTEOPOROSIS
     Dosage: 60 MG, DAILY (1/D)
     Route: 048
     Dates: start: 20030110
  2. OROCAL [Concomitant]
     Indication: OSTEOPOROSIS
  3. LEVOTHYROXINE [Concomitant]
     Indication: HYPOTHYROIDISM
     Dosage: 75 UG, DAILY (1/D)
  4. PROZAC [Concomitant]
  5. SECTRAL [Concomitant]
     Dosage: 50 MG, DAILY (1/D)
  6. TROPHIGIL [Concomitant]
  7. DIERGO-SPRAY [Concomitant]
     Indication: MIGRAINE
     Dosage: UNK, AS NEEDED

REACTIONS (3)
  - APHASIA [None]
  - HEMIPLEGIA [None]
  - MIGRAINE [None]
